FAERS Safety Report 25370834 (Version 1)
Quarter: 2025Q2

REPORT INFORMATION
  Report Type: Spontaneous
  Country: US (occurrence: US)
  Receive Date: 20250528
  Receipt Date: 20250528
  Transmission Date: 20250716
  Serious: No
  Sender: PRINSTON PHARMACEUTICAL
  Company Number: US-PRINSTON PHARMACEUTICAL INC.-2025PRN00028

PATIENT
  Sex: Male

DRUGS (1)
  1. OLMESARTAN MEDOXOMIL AND HYDROCHLOROTHIAZIDE [Suspect]
     Active Substance: HYDROCHLOROTHIAZIDE\OLMESARTAN MEDOXOMIL
     Indication: Blood pressure measurement

REACTIONS (8)
  - Nasopharyngitis [Unknown]
  - Lower respiratory tract infection [Unknown]
  - Movement disorder [Unknown]
  - Illness [Unknown]
  - Anxiety [Unknown]
  - Muscle spasms [Unknown]
  - Product dose omission issue [Unknown]
  - Product odour abnormal [Unknown]
